FAERS Safety Report 4628867-2 (Version None)
Quarter: 2005Q1

REPORT INFORMATION
  Report Type: 
  Country: None (occurrence: None)
  Receive Date: 20050107
  Receipt Date: 20040915
  Transmission Date: 20050727
  Serious: No
  Sender: FDA-Public Use
  Company Number: 234512K04USA

PATIENT
  Age: 55 Year
  Sex: Female

DRUGS (1)
  1. REBIF [Suspect]
     Indication: MULTIPLE SCLEROSIS
     Dosage: 44 MCG, 3 IN 1 WEEKS
     Dates: start: 20030331

REACTIONS (12)
  - ANXIETY [None]
  - DIARRHOEA [None]
  - DIZZINESS [None]
  - INJECTION SITE REACTION [None]
  - INNER EAR DISORDER [None]
  - INSOMNIA [None]
  - MULTIPLE SCLEROSIS [None]
  - MULTIPLE SCLEROSIS RELAPSE [None]
  - PERIPHERAL COLDNESS [None]
  - PERIPHERAL ISCHAEMIA [None]
  - PYREXIA [None]
  - SINUSITIS [None]
